FAERS Safety Report 12759009 (Version 1)
Quarter: 2016Q3

REPORT INFORMATION
  Report Type: Spontaneous
  Country: US (occurrence: US)
  Receive Date: 20160919
  Receipt Date: 20160919
  Transmission Date: 20161109
  Serious: No
  Sender: FDA-Public Use
  Company Number: US-PFIZER INC-3051067

PATIENT
  Sex: Female

DRUGS (2)
  1. AMIODARONE HCL [Suspect]
     Active Substance: AMIODARONE HYDROCHLORIDE
     Indication: ATRIAL FIBRILLATION
     Dosage: UNK
  2. ELIQUIS [Suspect]
     Active Substance: APIXABAN
     Dosage: 2.5 MG, FREQ: 2 DAY; INTERVAL: 1

REACTIONS (7)
  - Swollen tongue [Unknown]
  - Malaise [Unknown]
  - Epistaxis [Unknown]
  - Contusion [Unknown]
  - Heart rate increased [Unknown]
  - Pharyngeal oedema [Unknown]
  - Insomnia [Unknown]
